FAERS Safety Report 11366009 (Version 3)
Quarter: 2015Q3

REPORT INFORMATION
  Report Type: Spontaneous
  Country: US (occurrence: US)
  Receive Date: 20150811
  Receipt Date: 20150827
  Transmission Date: 20151125
  Serious: Yes (Hospitalization)
  Sender: FDA-Public Use
  Company Number: GXBR2015US001835

PATIENT
  Age: 78 Year
  Sex: Female
  Weight: 88.44 kg

DRUGS (1)
  1. ENOXAPARIN SODIUM. [Suspect]
     Active Substance: ENOXAPARIN SODIUM
     Indication: PULMONARY EMBOLISM
     Dosage: 100 MG, Q12H
     Route: 058
     Dates: start: 20150727, end: 20150801

REACTIONS (4)
  - Malaise [Recovering/Resolving]
  - Headache [Unknown]
  - Urinary tract infection [Unknown]
  - Subdural haematoma [Recovering/Resolving]

NARRATIVE: CASE EVENT DATE: 20150730
